FAERS Safety Report 16028698 (Version 1)
Quarter: 2019Q1

REPORT INFORMATION
  Report Type: Spontaneous
  Country: US (occurrence: US)
  Receive Date: 20190304
  Receipt Date: 20190304
  Transmission Date: 20190418
  Serious: Yes (Other)
  Sender: FDA-Public Use
  Company Number: US-RECORDATI RARE DISEASES INC.-US-R13005-19-00033

PATIENT
  Age: 59 Year
  Sex: Female

DRUGS (1)
  1. HEMIN [Suspect]
     Active Substance: HEMIN
     Indication: PORPHYRIA ACUTE
     Route: 065

REACTIONS (3)
  - Iron overload [Unknown]
  - Hepatic cirrhosis [Unknown]
  - Liver transplant [Unknown]
